FAERS Safety Report 23904956 (Version 1)
Quarter: 2024Q2

REPORT INFORMATION
  Report Type: Spontaneous
  Country: US (occurrence: US)
  Receive Date: 20240527
  Receipt Date: 20240527
  Transmission Date: 20240716
  Serious: No
  Sender: FDA-Public Use
  Company Number: US-BRISTOL-MYERS SQUIBB COMPANY-2024-083647

PATIENT
  Age: 70 Year
  Sex: Female
  Weight: 101.6 kg

DRUGS (1)
  1. POMALYST [Suspect]
     Active Substance: POMALIDOMIDE
     Indication: Plasma cell myeloma
     Dosage: FREQUENCY-3WKSON,1WKOFF
     Route: 048

REACTIONS (1)
  - Joint swelling [Not Recovered/Not Resolved]
